FAERS Safety Report 5441483-8 (Version None)
Quarter: 2007Q3

REPORT INFORMATION
  Report Type: 
  Country: None (occurrence: None)
  Receive Date: 20070904
  Receipt Date: 20070831
  Transmission Date: 20080115
  Serious: Yes (Life-Threatening)
  Sender: FDA-Public Use
  Company Number: PHBS2007JP14403

PATIENT

DRUGS (3)
  1. LANSOPRAZOLE [Suspect]
     Route: 048
  2. OLMETEC [Suspect]
     Route: 048
  3. APRESOLINE [Suspect]
     Indication: HYPERTENSION
     Route: 048

REACTIONS (1)
  - TOXIC EPIDERMAL NECROLYSIS [None]
